FAERS Safety Report 15774704 (Version 1)
Quarter: 2018Q4

REPORT INFORMATION
  Report Type: Spontaneous
  Country: US (occurrence: US)
  Receive Date: 20181230
  Receipt Date: 20181230
  Transmission Date: 20190205
  Serious: No
  Sender: FDA-Public Use
  Company Number: US-JNJFOC-20181207149

PATIENT
  Sex: Male
  Weight: 6.12 kg

DRUGS (1)
  1. INFANTS TYLENOL [Suspect]
     Active Substance: ACETAMINOPHEN
     Indication: TEETHING
     Dosage: ONLY AS NEEDED
     Route: 048

REACTIONS (1)
  - Expulsion of medication [Unknown]
